FAERS Safety Report 15835834 (Version 1)
Quarter: 2018Q4

REPORT INFORMATION
  Report Type: Spontaneous
  Country: US (occurrence: US)
  Receive Date: 20181221
  Receipt Date: 20181221
  Transmission Date: 20190205
  Serious: Yes (Hospitalization)
  Sender: FDA-Public Use
  Company Number: None

PATIENT
  Age: 71 Year
  Sex: Male

DRUGS (3)
  1. IPILIMUMAB [Suspect]
     Active Substance: IPILIMUMAB
     Indication: THYROID CANCER
     Dosage: ?          OTHER FREQUENCY:Q6W;?
     Route: 042
     Dates: start: 20181109, end: 20181130
  2. NO DRUG NAME [Concomitant]
  3. NIVOLUMAB [Suspect]
     Active Substance: NIVOLUMAB
     Indication: THYROID CANCER
     Route: 042
     Dates: start: 20181126, end: 20181130

REACTIONS (1)
  - Pneumonitis [None]

NARRATIVE: CASE EVENT DATE: 20181128
